FAERS Safety Report 9800875 (Version 2)
Quarter: 2014Q1

REPORT INFORMATION
  Report Type: Spontaneous
  Country: US (occurrence: US)
  Receive Date: 20140107
  Receipt Date: 20140205
  Transmission Date: 20141002
  Serious: No
  Sender: FDA-Public Use
  Company Number: US-PFIZER INC-2014003657

PATIENT
  Sex: Female

DRUGS (3)
  1. LYRICA [Suspect]
     Indication: MUSCULOSKELETAL DISCOMFORT
     Dosage: 25 MG, 1X/DAY
     Dates: start: 2013
  2. LYRICA [Suspect]
     Indication: NEUROPATHY PERIPHERAL
     Dosage: 50 MG, 1X/DAY
     Dates: start: 2013
  3. LYRICA [Suspect]
     Dosage: UNK

REACTIONS (1)
  - Amnesia [Unknown]
